FAERS Safety Report 24998132 (Version 1)
Quarter: 2025Q1

REPORT INFORMATION
  Report Type: Spontaneous
  Country: US (occurrence: US)
  Receive Date: 20250222
  Receipt Date: 20250222
  Transmission Date: 20250409
  Serious: No
  Sender: SANOFI AVENTIS
  Company Number: US-SA-2025SA044244

PATIENT
  Sex: Female

DRUGS (23)
  1. DUPIXENT [Suspect]
     Active Substance: DUPILUMAB
     Indication: Asthma
     Dosage: 300 MG, QOW
     Route: 058
     Dates: start: 20210507
  2. ALBUTEROL SULFATE [Concomitant]
     Active Substance: ALBUTEROL SULFATE
  3. ACETAMINOPHEN\CODEINE PHOSPHATE [Concomitant]
     Active Substance: ACETAMINOPHEN\CODEINE PHOSPHATE
  4. BOOSTRIX [Concomitant]
     Active Substance: TETANUS TOXOID, REDUCED DIPHTHERIA TOXOID AND ACELLULAR PERTUSSIS VACCINE, ADSORBED ANTIGENS
  5. CHLORHEXIDINE GLUCONATE [Concomitant]
     Active Substance: CHLORHEXIDINE GLUCONATE
  6. DESONIDE [Concomitant]
     Active Substance: DESONIDE
  7. ELIQUIS [Concomitant]
     Active Substance: APIXABAN
  8. HYDROCHLOROTHIAZIDE [Concomitant]
     Active Substance: HYDROCHLOROTHIAZIDE
  9. LEVOTHYROXINE [Concomitant]
     Active Substance: LEVOTHYROXINE
  10. METHYLPHENIDATE [Concomitant]
     Active Substance: METHYLPHENIDATE
  11. MOMETASONE [Concomitant]
     Active Substance: MOMETASONE
  12. MONTELUKAST [Concomitant]
     Active Substance: MONTELUKAST
  13. OMEPRAZOLE [Concomitant]
     Active Substance: OMEPRAZOLE
  14. ONDANSETRON [Concomitant]
     Active Substance: ONDANSETRON
  15. PREDNISONE [Concomitant]
     Active Substance: PREDNISONE
  16. PREVNAR 13 [Concomitant]
     Active Substance: STREPTOCOCCUS PNEUMONIAE TYPE 1 CAPSULAR POLYSACCHARIDE DIPHTHERIA CRM197 PROTEIN CONJUGATE ANTIGEN\
  17. STRATTERA [Concomitant]
     Active Substance: ATOMOXETINE HYDROCHLORIDE
  18. SUPREP BOWEL PREP [Concomitant]
     Active Substance: MAGNESIUM SULFATE\POTASSIUM SULFATE\SODIUM SULFATE
  19. SYMBICORT [Concomitant]
     Active Substance: BUDESONIDE\FORMOTEROL FUMARATE DIHYDRATE
  20. TIZANIDINE [Concomitant]
     Active Substance: TIZANIDINE
  21. TRAMADOL HCL [Concomitant]
     Active Substance: TRAMADOL HYDROCHLORIDE
  22. URSODIOL [Concomitant]
     Active Substance: URSODIOL
  23. ATORVASTATIN [Concomitant]
     Active Substance: ATORVASTATIN

REACTIONS (1)
  - Drug ineffective [Unknown]
